FAERS Safety Report 15586358 (Version 1)
Quarter: 2018Q4

REPORT INFORMATION
  Report Type: Spontaneous
  Country: US (occurrence: US)
  Receive Date: 20181105
  Receipt Date: 20181105
  Transmission Date: 20190205
  Serious: No
  Sender: FDA-Public Use
  Company Number: US-ALLERGAN-1849277US

PATIENT
  Age: 18 Year
  Sex: Female

DRUGS (2)
  1. LO LOESTRIN FE [Suspect]
     Active Substance: ETHINYL ESTRADIOL\NORETHINDRONE ACETATE
     Indication: BLOOD IRON DECREASED
     Dosage: UNK
     Route: 048
     Dates: start: 201808
  2. IRON SUPPLEMENT [Concomitant]
     Active Substance: IRON
     Indication: BLOOD IRON DECREASED

REACTIONS (1)
  - Off label use [Unknown]
